FAERS Safety Report 8569633-5 (Version None)
Quarter: 2012Q3

REPORT INFORMATION
  Report Type: 
  Country: None (occurrence: None)
  Receive Date: 20120803
  Receipt Date: 20120620
  Transmission Date: 20120928
  Serious: No
  Sender: FDA-Public Use
  Company Number: US-ABBOTT-12P-163-0948185-00

PATIENT
  Sex: Male

DRUGS (5)
  1. NIASPAN [Suspect]
     Indication: LIPOPROTEIN (A) INCREASED
     Route: 048
     Dates: start: 20110126
  2. NIASPAN [Suspect]
     Dosage: 1000MG DAILY
     Route: 048
     Dates: end: 20120601
  3. UNKNOWN SUPPLEMENTS [Concomitant]
     Indication: PRODUCT USED FOR UNKNOWN INDICATION
  4. UNKNOWN MULTI-VITAMIN [Concomitant]
     Indication: PRODUCT USED FOR UNKNOWN INDICATION
  5. NIASPAN [Suspect]
     Route: 048
     Dates: start: 20120601

REACTIONS (2)
  - ERYTHEMA [None]
  - FLUSHING [None]
